FAERS Safety Report 21679103 (Version 1)
Quarter: 2022Q4

REPORT INFORMATION
  Report Type: Spontaneous
  Country: US (occurrence: US)
  Receive Date: 20221204
  Receipt Date: 20221204
  Transmission Date: 20230112
  Serious: No
  Sender: FDA-Public Use
  Company Number: US-AMGEN-USASP2022209719

PATIENT
  Sex: Female

DRUGS (5)
  1. ENBREL [Suspect]
     Active Substance: ETANERCEPT
     Indication: Product used for unknown indication
     Dosage: UNK
     Route: 065
  2. HUMIRA [Suspect]
     Active Substance: ADALIMUMAB
     Indication: Product used for unknown indication
     Dosage: UNK
     Route: 058
  3. COVID-19 vaccine [Concomitant]
     Indication: COVID-19 immunisation
     Dosage: UNK
     Dates: start: 20210202, end: 20210202
  4. COVID-19 vaccine [Concomitant]
     Dosage: UNK
     Dates: start: 20210923, end: 20210923
  5. COVID-19 vaccine [Concomitant]
     Dosage: UNK
     Dates: start: 20210114, end: 20210114

REACTIONS (1)
  - Haemoptysis [Unknown]
